FAERS Safety Report 20188454 (Version 1)
Quarter: 2021Q4

REPORT INFORMATION
  Report Type: Spontaneous
  Country: BR (occurrence: BR)
  Receive Date: 20211215
  Receipt Date: 20211215
  Transmission Date: 20220303
  Serious: Yes (Other)
  Sender: FDA-Public Use
  Company Number: BR-ALLERGAN-2141834US

PATIENT
  Sex: Female

DRUGS (1)
  1. ZYMAR [Suspect]
     Active Substance: GATIFLOXACIN
     Indication: Eye infection
     Dosage: 1 VIAL, 5 ML
     Dates: start: 20211205

REACTIONS (6)
  - Blindness [Not Recovered/Not Resolved]
  - Eye oedema [Unknown]
  - Hypersensitivity [Unknown]
  - Eye pain [Recovering/Resolving]
  - Eyelid oedema [Not Recovered/Not Resolved]
  - Vision blurred [Unknown]
